FAERS Safety Report 4268088-9 (Version None)
Quarter: 2004Q1

REPORT INFORMATION
  Report Type: 
  Country: None (occurrence: None)
  Receive Date: 20040109
  Receipt Date: 20011226
  Transmission Date: 20041129
  Serious: Yes (Death)
  Sender: FDA-Public Use
  Company Number: US-BRISTOL-MYERS SQUIBB COMPANY-11648060

PATIENT
  Age: 27 Year
  Sex: Female

DRUGS (1)
  1. STADOL [Suspect]
     Indication: MIGRAINE
     Route: 045

REACTIONS (5)
  - BREECH PRESENTATION [None]
  - CHORIOAMNIONITIS [None]
  - COMPLICATIONS OF MATERNAL EXPOSURE TO THERAPEUTIC DRUGS [None]
  - DRUG EXPOSURE DURING PREGNANCY [None]
  - INTRA-UTERINE DEATH [None]
